FAERS Safety Report 5449974-0 (Version None)
Quarter: 2007Q3

REPORT INFORMATION
  Report Type: 
  Country: None (occurrence: None)
  Receive Date: 20070912
  Receipt Date: 20070905
  Transmission Date: 20080115
  Serious: Yes (Hospitalization)
  Sender: FDA-Public Use
  Company Number: DE-BAYER-200710987BVD

PATIENT
  Age: 64 Year
  Sex: Female
  Weight: 65 kg

DRUGS (9)
  1. CIPRO [Suspect]
     Route: 048
     Dates: start: 20070715
  2. CIPRO [Suspect]
     Route: 042
     Dates: start: 20070808
  3. EPIRUBICIN [Suspect]
     Route: 042
     Dates: start: 20070801, end: 20070801
  4. EPIRUBICIN [Suspect]
     Route: 042
     Dates: start: 20070711, end: 20070711
  5. DOCETAXEL [Suspect]
     Route: 042
     Dates: start: 20070801, end: 20070801
  6. DOCETAXEL [Suspect]
     Route: 042
     Dates: start: 20070711, end: 20070711
  7. ASPIRIN [Concomitant]
     Route: 048
  8. GRANOCYTE [Concomitant]
     Route: 058
     Dates: start: 20070715, end: 20070723
  9. FERRO SANOL [Concomitant]
     Route: 048

REACTIONS (6)
  - DIARRHOEA [None]
  - HYPOVOLAEMIA [None]
  - PANCYTOPENIA [None]
  - PYREXIA [None]
  - VOMITING [None]
  - WEIGHT DECREASED [None]
